FAERS Safety Report 25045684 (Version 1)
Quarter: 2025Q1

REPORT INFORMATION
  Report Type: Spontaneous
  Country: CN (occurrence: CN)
  Receive Date: 20250306
  Receipt Date: 20250306
  Transmission Date: 20250409
  Serious: Yes (Other)
  Sender: SANOFI AVENTIS
  Company Number: CN-SA-2025SA066545

PATIENT
  Age: 82 Year
  Sex: Male
  Weight: 50 kg

DRUGS (2)
  1. CLOPIDOGREL BISULFATE [Suspect]
     Active Substance: CLOPIDOGREL BISULFATE
     Indication: Angiogram
     Dosage: 300 MG, QD
     Route: 048
     Dates: start: 20250213, end: 20250213
  2. ASPIRIN [Suspect]
     Active Substance: ASPIRIN
     Indication: Angiogram
     Dosage: 300 MG, QD
     Route: 048
     Dates: start: 20250213, end: 20250213

REACTIONS (1)
  - Gastrooesophageal reflux disease [Recovered/Resolved]

NARRATIVE: CASE EVENT DATE: 20250213
